FAERS Safety Report 9099667 (Version 3)
Quarter: 2013Q1

REPORT INFORMATION
  Report Type: Spontaneous
  Country: US (occurrence: US)
  Receive Date: 20130214
  Receipt Date: 20130319
  Transmission Date: 20140127
  Serious: No
  Sender: FDA-Public Use
  Company Number: US-009507513-1302USA002119

PATIENT
  Age: 19 Year
  Sex: Female

DRUGS (1)
  1. NEXPLANON [Suspect]
     Dosage: UNK
     Route: 059
     Dates: start: 20130211, end: 20130213

REACTIONS (4)
  - Complication of device insertion [Unknown]
  - Device damage [Unknown]
  - Product quality issue [Unknown]
  - No adverse event [Unknown]
